FAERS Safety Report 8417442-X (Version None)
Quarter: 2012Q2

REPORT INFORMATION
  Report Type: 
  Country: None (occurrence: None)
  Receive Date: 20120606
  Receipt Date: 20120529
  Transmission Date: 20120825
  Serious: Yes (Hospitalization, Other)
  Sender: FDA-Public Use
  Company Number: PHEH2011US06547

PATIENT
  Sex: Male
  Weight: 72.562 kg

DRUGS (13)
  1. ASPIRIN [Concomitant]
     Dosage: 81 MG, QD
  2. METOPROLOL TARTRATE [Concomitant]
     Dosage: 50 MG, QD
  3. GLEEVEC [Suspect]
     Indication: GASTROINTESTINAL STROMAL TUMOUR
     Dosage: 400 MG, QD
     Route: 048
     Dates: start: 20030101
  4. GLEEVEC [Suspect]
     Dosage: 800 MG, QD
     Route: 048
  5. LISINOPRIL [Concomitant]
     Dosage: 20/5 MG, QD
     Route: 065
  6. SUTENT [Concomitant]
     Dosage: 50 MG, QD
  7. TOPROL-XL [Concomitant]
     Dosage: 25 MG, UNK
  8. FERROUS SULFATE TAB [Suspect]
     Indication: BLOOD IRON DECREASED
     Dosage: 325 MG, BID
     Route: 048
     Dates: start: 20110725, end: 20110727
  9. ADVAIR DISKUS 100/50 [Concomitant]
  10. GLEEVEC [Suspect]
     Dosage: 400 MG, BID
  11. MULTI-VITAMINS [Concomitant]
  12. VITAMIN B-12 [Concomitant]
     Dosage: 1000 UG, MONTHLY
  13. PROTONIX [Concomitant]
     Dosage: 20 MG, UNK

REACTIONS (18)
  - CARDIAC FAILURE CONGESTIVE [None]
  - ABDOMINAL DISCOMFORT [None]
  - VOMITING [None]
  - NODULE [None]
  - RED BLOOD CELL COUNT DECREASED [None]
  - FATIGUE [None]
  - SQUAMOUS CELL CARCINOMA OF SKIN [None]
  - ABDOMINAL PAIN [None]
  - SPUTUM DISCOLOURED [None]
  - BLOOD PRESSURE ABNORMAL [None]
  - ANAEMIA [None]
  - NAUSEA [None]
  - DIARRHOEA [None]
  - NEOPLASM MALIGNANT [None]
  - LUNG INFILTRATION [None]
  - GASTROINTESTINAL STROMAL TUMOUR [None]
  - ABDOMINAL TENDERNESS [None]
  - RHONCHI [None]
